FAERS Safety Report 5265625-2 (Version None)
Quarter: 2007Q1

REPORT INFORMATION
  Report Type: 
  Country: None (occurrence: None)
  Receive Date: 20061213
  Receipt Date: 20020916
  Transmission Date: 20070707
  Serious: Yes (Disabling)
  Sender: FDA-Public Use
  Company Number: 2002UW09883

PATIENT
  Age: 76 Year
  Sex: Female
  Weight: 63.9572 kg

DRUGS (3)
  1. TAMOXIFEN CITRATE [Suspect]
     Indication: BREAST CANCER STAGE II
     Dosage: 20 MG DAILY PO
     Route: 048
     Dates: start: 19930407, end: 19980301
  2. INSULIN [Concomitant]
  3. INDERAL [Concomitant]

REACTIONS (3)
  - ANAEMIA [None]
  - SMOOTH MUSCLE CELL NEOPLASM [None]
  - WEIGHT DECREASED [None]
